FAERS Safety Report 16851658 (Version 1)
Quarter: 2019Q3

REPORT INFORMATION
  Report Type: Report from Study
  Country: US (occurrence: US)
  Receive Date: 20190925
  Receipt Date: 20190925
  Transmission Date: 20191005
  Serious: Yes (Other)
  Sender: FDA-Public Use
  Company Number: US-ROCHE-2412614

PATIENT
  Sex: Male

DRUGS (33)
  1. ZYRTEC [Concomitant]
     Active Substance: CETIRIZINE HYDROCHLORIDE
     Route: 048
  2. FERROUS SULFATE. [Concomitant]
     Active Substance: FERROUS SULFATE
     Route: 048
  3. HUMULIN N [Concomitant]
     Active Substance: INSULIN HUMAN
     Dosage: AT BED TIME
     Route: 065
  4. TYLENOL [Concomitant]
     Active Substance: ACETAMINOPHEN
     Route: 048
  5. DIFLUCAN [Concomitant]
     Active Substance: FLUCONAZOLE
     Route: 048
  6. AZELASTINE. [Concomitant]
     Active Substance: AZELASTINE HYDROCHLORIDE
     Route: 065
  7. VITAMIN D3 [Concomitant]
     Active Substance: CHOLECALCIFEROL
     Route: 048
  8. PREVACID [Concomitant]
     Active Substance: LANSOPRAZOLE
     Dosage: BEFORE BREAKFAST
     Route: 048
  9. CIPRO [Concomitant]
     Active Substance: CIPROFLOXACIN HYDROCHLORIDE
     Route: 048
  10. NEURONTIN [Concomitant]
     Active Substance: GABAPENTIN
     Dosage: 3 TIMES DAILY
     Route: 048
  11. NYSTATIN. [Concomitant]
     Active Substance: NYSTATIN
     Dosage: 5 ML SWISH AND SPIT 4 TIMES DAILY
     Route: 065
  12. CULTURELLE KIDS CHEWABLES [Concomitant]
     Dosage: 1 CAP TWICE DAILY
     Route: 048
  13. ALBUTEROL SULFATE. [Concomitant]
     Active Substance: ALBUTEROL SULFATE
     Route: 048
  14. VALCYTE [Suspect]
     Active Substance: VALGANCICLOVIR HYDROCHLORIDE
     Indication: PRODUCT USED FOR UNKNOWN INDICATION
     Route: 048
  15. KEPPRA [Concomitant]
     Active Substance: LEVETIRACETAM
     Dosage: TWICE DAILY
     Route: 048
  16. ACTIGALL [Concomitant]
     Active Substance: URSODIOL
     Dosage: THREE TIMES DAILY
     Route: 048
  17. IMURAN [Concomitant]
     Active Substance: AZATHIOPRINE
     Route: 048
  18. POLYETHYLENE GLYCOL 3350. [Concomitant]
     Active Substance: POLYETHYLENE GLYCOL 3350
     Dosage: 17 G BY MOUTH
     Route: 048
  19. KAYEXALATE [Concomitant]
     Active Substance: SODIUM POLYSTYRENE SULFONATE
     Route: 048
  20. FLORINEF ACETATE [Concomitant]
     Active Substance: FLUDROCORTISONE ACETATE
     Route: 048
  21. PREDNISONE. [Concomitant]
     Active Substance: PREDNISONE
     Route: 048
  22. ZOLOFT [Concomitant]
     Active Substance: SERTRALINE HYDROCHLORIDE
     Route: 048
  23. DESYREL [Concomitant]
     Active Substance: TRAZODONE HYDROCHLORIDE
     Dosage: AT BED TIME
     Route: 048
  24. COLISTIN [Concomitant]
     Active Substance: COLISTIN
     Dosage: TWICE DAILY
     Route: 065
  25. ZENPEP [Concomitant]
     Active Substance: PANCRELIPASE AMYLASE\PANCRELIPASE LIPASE\PANCRELIPASE PROTEASE
     Route: 048
  26. BACTRIM [Concomitant]
     Active Substance: SULFAMETHOXAZOLE\TRIMETHOPRIM
  27. NEUPOGEN [Concomitant]
     Active Substance: FILGRASTIM
  28. CALCIUM CARBONATE. [Concomitant]
     Active Substance: CALCIUM CARBONATE
     Dosage: TWICE DAILY BY MOUTH
     Route: 048
  29. LOPRESSOR [Concomitant]
     Active Substance: METOPROLOL TARTRATE
     Dosage: TWICE DAILY
     Route: 048
  30. TOBI [Concomitant]
     Active Substance: TOBRAMYCIN
     Dosage: INTRUCTED EVERY 12 HOURS
     Route: 065
  31. XANAX [Concomitant]
     Active Substance: ALPRAZOLAM
     Dosage: 3 TIMES DAILY
     Route: 048
  32. ASCORBIC ACID. [Concomitant]
     Active Substance: ASCORBIC ACID
     Dosage: TWICE DAILY BY MOUTH, DAILY AFTER LUNCH AND DINNER
     Route: 048
  33. MAG OXIDE [Concomitant]
     Active Substance: MAGNESIUM OXIDE
     Dosage: TWICE DAILY
     Route: 048

REACTIONS (7)
  - Spinal fracture [Recovering/Resolving]
  - Seizure [Unknown]
  - Abdominal pain [Unknown]
  - Large intestine perforation [Unknown]
  - Dyspnoea [Unknown]
  - Back pain [Recovering/Resolving]
  - Anxiety [Recovering/Resolving]
